FAERS Safety Report 21996713 (Version 1)
Quarter: 2023Q1

REPORT INFORMATION
  Report Type: Spontaneous
  Country: US (occurrence: None)
  Receive Date: 20230215
  Receipt Date: 20230215
  Transmission Date: 20230418
  Serious: No
  Sender: FDA-Public Use
  Company Number: 2023A025987

PATIENT
  Sex: Male
  Weight: 95.3 kg

DRUGS (1)
  1. FARXIGA [Suspect]
     Active Substance: DAPAGLIFLOZIN PROPANEDIOL
     Indication: Diabetes mellitus
     Route: 048
     Dates: start: 20230113, end: 20230114

REACTIONS (9)
  - Feeling abnormal [Unknown]
  - Head discomfort [Unknown]
  - Dizziness [Unknown]
  - Asthenia [Unknown]
  - Psychotic disorder [Unknown]
  - Inappropriate affect [Unknown]
  - Headache [Unknown]
  - Fatigue [Unknown]
  - Nausea [Unknown]
